FAERS Safety Report 19302380 (Version 1)
Quarter: 2021Q2

REPORT INFORMATION
  Report Type: Spontaneous
  Country: US (occurrence: US)
  Receive Date: 20210525
  Receipt Date: 20210525
  Transmission Date: 20210717
  Serious: No
  Sender: FDA-Public Use
  Company Number: US-PFIZER INC-2021229204

PATIENT
  Age: 88 Year
  Sex: Female
  Weight: 62.14 kg

DRUGS (2)
  1. GABAPENTIN. [Suspect]
     Active Substance: GABAPENTIN
     Indication: BURNING SENSATION
     Dosage: 100 MG, 1X/DAY [100 MG ONCE CAP AT BEDTIME]
     Dates: start: 20210208
  2. GABAPENTIN. [Suspect]
     Active Substance: GABAPENTIN
     Dosage: 200 MG, 1X/DAY [2 PILLS AT BED TIME AT 10PM]

REACTIONS (1)
  - Drug ineffective [Unknown]
